FAERS Safety Report 24006429 (Version 1)
Quarter: 2024Q2

REPORT INFORMATION
  Report Type: Spontaneous
  Country: AU (occurrence: AU)
  Receive Date: 20240624
  Receipt Date: 20240624
  Transmission Date: 20240716
  Serious: Yes (Other)
  Sender: FDA-Public Use
  Company Number: AU-SA-SAC20240130001056

PATIENT
  Age: 40 Year
  Sex: Female

DRUGS (4)
  1. ASPIRIN [Suspect]
     Active Substance: ASPIRIN
     Indication: Product used for unknown indication
     Dosage: 100 MG,INTERVAL: 1 DAY
     Route: 065
     Dates: start: 20210313
  2. ENOXAPARIN SODIUM [Suspect]
     Active Substance: ENOXAPARIN SODIUM
     Indication: Product used for unknown indication
     Dosage: 40 MG, INTERVAL: 1 DAY
     Route: 065
     Dates: start: 20210313
  3. FILGRASTIM [Suspect]
     Active Substance: FILGRASTIM
     Indication: Immunosuppression
     Dosage: UNK
     Route: 065
     Dates: start: 20210313
  4. TACROLIMUS [Suspect]
     Active Substance: TACROLIMUS
     Indication: Immunosuppression
     Route: 065

REACTIONS (1)
  - Post procedural haemorrhage [Recovered/Resolved]

NARRATIVE: CASE EVENT DATE: 20210313
